FAERS Safety Report 9393385 (Version 1)
Quarter: 2013Q3

REPORT INFORMATION
  Report Type: Spontaneous
  Country: US (occurrence: None)
  Receive Date: 20130709
  Receipt Date: 20130709
  Transmission Date: 20140515
  Serious: Yes (Life-Threatening, Other)
  Sender: FDA-Public Use
  Company Number: None

PATIENT
  Age: 56 Year
  Sex: Female
  Weight: 82.1 kg

DRUGS (4)
  1. OCTAGAM [Suspect]
     Dosage: 2 DAYS EACH MONTH
     Route: 041
     Dates: start: 20130704, end: 20130706
  2. OCTAGAM [Suspect]
  3. PREDISONE [Concomitant]
  4. CLONIDINE [Concomitant]

REACTIONS (5)
  - Tremor [None]
  - Infusion related reaction [None]
  - Heart rate increased [None]
  - Blood pressure increased [None]
  - Tachycardia [None]
